FAERS Safety Report 7103586-1 (Version None)
Quarter: 2010Q4

REPORT INFORMATION
  Report Type: 
  Country: None (occurrence: None)
  Receive Date: 20101115
  Receipt Date: 20101110
  Transmission Date: 20110411
  Serious: Yes (Death, Other)
  Sender: FDA-Public Use
  Company Number: US-CELGENEUS-163-21880-10101497

PATIENT
  Sex: Female

DRUGS (2)
  1. REVLIMID [Suspect]
     Indication: MULTIPLE MYELOMA
     Route: 048
     Dates: start: 20090701, end: 20090101
  2. REVLIMID [Suspect]
     Route: 048
     Dates: start: 20100501, end: 20100101

REACTIONS (2)
  - RESPIRATORY FAILURE [None]
  - SEPSIS [None]
